FAERS Safety Report 7904927-5 (Version None)
Quarter: 2011Q4

REPORT INFORMATION
  Report Type: 
  Country: None (occurrence: None)
  Receive Date: 20111109
  Receipt Date: 20111101
  Transmission Date: 20120403
  Serious: No
  Sender: FDA-Public Use
  Company Number: PHEH2011US04091

PATIENT
  Age: 56 Year
  Sex: Female

DRUGS (5)
  1. COPAXONE [Suspect]
     Dosage: UNK UKN, UNK
  2. GILENYA [Suspect]
     Dosage: 0.5 MG, QD
  3. REBIF [Suspect]
     Dosage: UNK UKN, UNK
  4. VITAMINS NOS [Concomitant]
     Dosage: UNK UKN, UNK
  5. BETASERON [Suspect]
     Dosage: UNK UKN, UNK

REACTIONS (2)
  - MOTOR DYSFUNCTION [None]
  - DRUG INEFFECTIVE [None]
